FAERS Safety Report 9013607 (Version 1)
Quarter: 2013Q1

REPORT INFORMATION
  Report Type: Spontaneous
  Country: US (occurrence: None)
  Receive Date: 20130109
  Receipt Date: 20130109
  Transmission Date: 20140127
  Serious: Yes (Hospitalization)
  Sender: FDA-Public Use
  Company Number: None

PATIENT
  Sex: Male
  Weight: 91 kg

DRUGS (5)
  1. ALEMTUZUMAB [Suspect]
  2. CYCLOPHOSPHAMIDE [Suspect]
  3. PENTOSTATIN [Suspect]
  4. RITUXIMAB (MOAB C2B8 ANTI CD20, CHIMERIC) [Suspect]
  5. PROCHLORPERAZINE [Concomitant]

REACTIONS (1)
  - Myelodysplastic syndrome [None]
